FAERS Safety Report 19839971 (Version 2)
Quarter: 2022Q3

REPORT INFORMATION
  Report Type: Spontaneous
  Country: US (occurrence: US)
  Receive Date: 20210915
  Receipt Date: 20220912
  Transmission Date: 20221027
  Serious: No
  Sender: FDA-Public Use
  Company Number: US-NOVARTISTESTPH-NVSC2021US208407

PATIENT
  Age: 83 Year
  Sex: Female

DRUGS (2)
  1. ILEVRO [Suspect]
     Active Substance: NEPAFENAC
     Indication: Product used for unknown indication
     Dosage: 0.3 %, QD
     Route: 065
     Dates: start: 20210907
  2. OMEPRAZOLE [Concomitant]
     Active Substance: OMEPRAZOLE
     Indication: Product used for unknown indication
     Dosage: UNK
     Route: 065

REACTIONS (3)
  - Sinus disorder [Unknown]
  - Headache [Unknown]
  - Hypertension [Unknown]

NARRATIVE: CASE EVENT DATE: 20210908
